FAERS Safety Report 15734329 (Version 1)
Quarter: 2018Q4

REPORT INFORMATION
  Report Type: Spontaneous
  Country: US (occurrence: US)
  Receive Date: 20181203
  Receipt Date: 20181203
  Transmission Date: 20190205
  Serious: Yes (Other)
  Sender: FDA-Public Use
  Company Number: None

PATIENT
  Age: 63 Year
  Sex: Female
  Weight: 64.35 kg

DRUGS (8)
  1. VITAMIN D [Concomitant]
     Active Substance: CHOLECALCIFEROL
  2. YUVAFEM [Suspect]
     Active Substance: ESTRADIOL HEMIHYDRATE
     Indication: VULVOVAGINAL DRYNESS
     Dosage: ?          QUANTITY:1 TABLET(S);OTHER FREQUENCY:2-3 TIMES A WEEK;?
     Route: 067
     Dates: start: 20180420, end: 20180719
  3. VITAMIN B12 [Concomitant]
     Active Substance: CYANOCOBALAMIN
  4. AZELASTINE HCL [Suspect]
     Active Substance: AZELASTINE HYDROCHLORIDE
  5. MAGNESIUM [Concomitant]
     Active Substance: MAGNESIUM
  6. ZINC. [Concomitant]
     Active Substance: ZINC
  7. B-6 [Concomitant]
  8. VAGIFEM [Concomitant]
     Active Substance: ESTRADIOL

REACTIONS (9)
  - Vulvovaginal dryness [None]
  - Pain in extremity [None]
  - Dyspnoea [None]
  - Fatigue [None]
  - Product substitution issue [None]
  - Product complaint [None]
  - Therapeutic product ineffective [None]
  - Asthenia [None]
  - Vulvovaginal discomfort [None]

NARRATIVE: CASE EVENT DATE: 20180601
